FAERS Safety Report 5237593-0 (Version None)
Quarter: 2007Q1

REPORT INFORMATION
  Report Type: 
  Country: None (occurrence: None)
  Receive Date: 20070213
  Receipt Date: 20070201
  Transmission Date: 20070707
  Serious: Yes (Hospitalization)
  Sender: FDA-Public Use
  Company Number: IE-PFIZER INC-2007009678

PATIENT
  Age: 75 Year
  Sex: Female

DRUGS (1)
  1. ZYVOX [Suspect]
     Indication: DRUG USE FOR UNKNOWN INDICATION

REACTIONS (3)
  - HAEMATURIA [None]
  - ILL-DEFINED DISORDER [None]
  - PLATELET COUNT DECREASED [None]
